FAERS Safety Report 7282137-5 (Version None)
Quarter: 2011Q1

REPORT INFORMATION
  Report Type: 
  Country: None (occurrence: None)
  Receive Date: 20110208
  Receipt Date: 20110202
  Transmission Date: 20110831
  Serious: Yes (Other)
  Sender: FDA-Public Use
  Company Number: US-PFIZER INC-2011021107

PATIENT
  Sex: Male
  Weight: 158.73 kg

DRUGS (3)
  1. TRAMADOL [Concomitant]
     Indication: BACK INJURY
     Dosage: UNK
  2. AMRIX [Concomitant]
     Indication: INSOMNIA
     Dosage: UNK
  3. CHANTIX [Suspect]
     Indication: SMOKING CESSATION THERAPY
     Dosage: UNK
     Route: 048
     Dates: start: 20100101, end: 20110101

REACTIONS (4)
  - FALL [None]
  - INJURY [None]
  - INSOMNIA [None]
  - NIGHTMARE [None]
